FAERS Safety Report 20152752 (Version 1)
Quarter: 2021Q4

REPORT INFORMATION
  Report Type: Spontaneous
  Country: IL (occurrence: None)
  Receive Date: 20211206
  Receipt Date: 20211206
  Transmission Date: 20220303
  Serious: Yes (Other)
  Sender: FDA-Public Use
  Company Number: 2021A855036

PATIENT
  Age: 52 Year
  Sex: Female

DRUGS (1)
  1. OLAPARIB [Suspect]
     Active Substance: OLAPARIB
     Indication: Chondrosarcoma
     Route: 048

REACTIONS (2)
  - Chondrosarcoma recurrent [Unknown]
  - Product use in unapproved indication [Unknown]
